FAERS Safety Report 9207817 (Version 1)
Quarter: 2013Q2

REPORT INFORMATION
  Report Type: Report from Study
  Country: JP (occurrence: JP)
  Receive Date: 20130403
  Receipt Date: 20130403
  Transmission Date: 20140414
  Serious: Yes (Other)
  Sender: FDA-Public Use
  Company Number: JP-GLAXOSMITHKLINE-B0597990A

PATIENT
  Age: 37 Year
  Sex: Female
  Weight: 45 kg

DRUGS (13)
  1. TYKERB [Suspect]
     Indication: BREAST CANCER
     Route: 048
     Dates: start: 20090731, end: 20100630
  2. XELODA [Suspect]
     Indication: PRODUCT USED FOR UNKNOWN INDICATION
     Route: 048
     Dates: start: 20090731, end: 20100114
  3. XELODA [Suspect]
     Indication: PRODUCT USED FOR UNKNOWN INDICATION
     Route: 048
     Dates: start: 20100115, end: 20100211
  4. XELODA [Suspect]
     Indication: PRODUCT USED FOR UNKNOWN INDICATION
     Route: 048
     Dates: start: 20100212, end: 20100630
  5. FEMARA [Concomitant]
     Indication: BREAST CANCER
     Route: 065
     Dates: end: 20100131
  6. TAKEPRON [Concomitant]
     Indication: OESOPHAGITIS
     Route: 048
     Dates: start: 20090731, end: 20100630
  7. NASEA-OD [Concomitant]
     Indication: NAUSEA
     Route: 048
     Dates: start: 20090731, end: 20100630
  8. NAUZELIN [Concomitant]
     Indication: NAUSEA
     Route: 048
     Dates: start: 20090731, end: 20100630
  9. PYDOXAL [Concomitant]
     Indication: HYPOVITAMINOSIS
     Route: 048
     Dates: start: 20090731, end: 20100630
  10. MAGNESIUM OXIDE [Concomitant]
     Indication: CONSTIPATION
     Route: 048
     Dates: start: 20090731, end: 20100630
  11. OXYCONTIN [Concomitant]
     Indication: PAIN
     Route: 048
     Dates: start: 20090731, end: 20100630
  12. GABAPEN [Concomitant]
     Indication: PAIN
     Route: 048
     Dates: start: 20090731, end: 20100630
  13. AMOXAN [Concomitant]
     Indication: PAIN
     Route: 048
     Dates: start: 20090731, end: 20100630

REACTIONS (4)
  - Deafness [Not Recovered/Not Resolved]
  - White blood cell count decreased [Recovering/Resolving]
  - White blood cell count decreased [Recovering/Resolving]
  - Hepatic function abnormal [Not Recovered/Not Resolved]
